FAERS Safety Report 20348595 (Version 1)
Quarter: 2022Q1

REPORT INFORMATION
  Report Type: Spontaneous
  Country: GB (occurrence: GB)
  Receive Date: 20220119
  Receipt Date: 20220119
  Transmission Date: 20220424
  Serious: Yes (Death, Hospitalization)
  Sender: FDA-Public Use
  Company Number: GB-NOVOPROD-882397

PATIENT
  Age: 73 Year
  Sex: Male

DRUGS (1)
  1. COAGULATION FACTOR IX (RECOMBINANT), GLYCOPEGYLATED [Suspect]
     Active Substance: COAGULATION FACTOR IX (RECOMBINANT), GLYCOPEGYLATED
     Indication: Factor IX deficiency
     Dosage: 40 IU/KG, QW
     Route: 065
     Dates: start: 2018, end: 202201

REACTIONS (2)
  - Death [Fatal]
  - Haemorrhage [Unknown]
